FAERS Safety Report 15464843 (Version 1)
Quarter: 2018Q4

REPORT INFORMATION
  Report Type: Spontaneous
  Country: US (occurrence: US)
  Receive Date: 20181004
  Receipt Date: 20181004
  Transmission Date: 20190204
  Serious: No
  Sender: FDA-Public Use
  Company Number: US-TARO-2018TAR00089

PATIENT
  Sex: Male
  Weight: 69.62 kg

DRUGS (8)
  1. TERAZOSIN [Concomitant]
     Active Substance: TERAZOSIN\TERAZOSIN HYDROCHLORIDE
  2. AMLODIPINE [Concomitant]
     Active Substance: AMLODIPINE BESYLATE
  3. PHENYTOIN SODIUM EXTENDED [Suspect]
     Active Substance: PHENYTOIN SODIUM
     Indication: SEIZURE
     Dosage: 100 MG, 2X/DAY MORNING AND NIGHT
     Route: 048
  4. RANITIDINE. [Concomitant]
     Active Substance: RANITIDINE
  5. NEURONTIN [Concomitant]
     Active Substance: GABAPENTIN
  6. ENALAPRIL [Concomitant]
     Active Substance: ENALAPRIL
  7. DUTASTERIDE. [Concomitant]
     Active Substance: DUTASTERIDE
  8. PHENOBARBITAL. [Concomitant]
     Active Substance: PHENOBARBITAL
     Dosage: UNK, UNK

REACTIONS (1)
  - Rash macular [Not Recovered/Not Resolved]
